FAERS Safety Report 7212640-5 (Version None)
Quarter: 2011Q1

REPORT INFORMATION
  Report Type: 
  Country: None (occurrence: None)
  Receive Date: 20110106
  Receipt Date: 20110104
  Transmission Date: 20110831
  Serious: No
  Sender: FDA-Public Use
  Company Number: US-PFIZER INC-2011002562

PATIENT
  Sex: Female
  Weight: 104 kg

DRUGS (1)
  1. LYRICA [Suspect]
     Indication: HERPES ZOSTER
     Dosage: 75 MG, 2X/DAY
     Route: 048
     Dates: start: 20110103

REACTIONS (7)
  - DYSSTASIA [None]
  - DIZZINESS [None]
  - VISION BLURRED [None]
  - FEELING DRUNK [None]
  - SOMNOLENCE [None]
  - DISORIENTATION [None]
  - GAIT DISTURBANCE [None]
